FAERS Safety Report 16055675 (Version 1)
Quarter: 2019Q1

REPORT INFORMATION
  Report Type: Spontaneous
  Country: CH (occurrence: CH)
  Receive Date: 20190311
  Receipt Date: 20190311
  Transmission Date: 20190418
  Serious: Yes (Other)
  Sender: FDA-Public Use
  Company Number: CH-ROCHE-2273561

PATIENT
  Sex: Female

DRUGS (3)
  1. CISPLATIN. [Concomitant]
     Active Substance: CISPLATIN
     Indication: CERVIX CANCER METASTATIC
  2. AVASTIN [Suspect]
     Active Substance: BEVACIZUMAB
     Indication: CERVIX CANCER METASTATIC
     Route: 042
  3. PACLITAXEL. [Concomitant]
     Active Substance: PACLITAXEL
     Indication: CERVIX CANCER METASTATIC

REACTIONS (1)
  - Cervix cancer metastatic [Not Recovered/Not Resolved]
